FAERS Safety Report 4283629-3 (Version None)
Quarter: 2004Q1

REPORT INFORMATION
  Report Type: 
  Country: None (occurrence: None)
  Receive Date: 20040129
  Receipt Date: 20040129
  Transmission Date: 20041129
  Serious: Yes (Hospitalization)
  Sender: FDA-Public Use
  Company Number: None

PATIENT
  Age: 77 Year
  Sex: Female
  Weight: 92.2 kg

DRUGS (11)
  1. METOPROLOL [Suspect]
     Indication: HYPERTENSION
     Dosage: 12.5 BID, CHRONIC
  2. GLUCOTROL XL [Suspect]
     Indication: DIABETES MELLITUS
     Dosage: 5 MG PO QD, CHRONIC
     Route: 048
  3. ENALAPRIL [Suspect]
     Indication: HYPERTENSION
     Dosage: 5 BID CHRONIC
  4. LUMIGAN [Concomitant]
  5. AMIODARONE HCL [Concomitant]
  6. ENALAPRIL MALEATE [Concomitant]
  7. SYNTHROID [Concomitant]
  8. POTASSIUM [Concomitant]
  9. WARFARIN SODIUM [Concomitant]
  10. PEPCID [Concomitant]
  11. LASIX [Concomitant]

REACTIONS (5)
  - ARRHYTHMIA [None]
  - AUTONOMIC NEUROPATHY [None]
  - BLOOD GLUCOSE INCREASED [None]
  - FALL [None]
  - HYPOTENSION [None]
